FAERS Safety Report 8833814 (Version 1)
Quarter: 2012Q4

REPORT INFORMATION
  Report Type: 
  Country: DE (occurrence: DE)
  Receive Date: 20121011
  Receipt Date: 20121011
  Transmission Date: 20130627
  Serious: Yes (Other)
  Sender: FDA-Public Use
  Company Number: DE-JNJFOC-20121002672

PATIENT

DRUGS (5)
  1. DARUNAVIR [Suspect]
     Indication: HIV INFECTION
     Route: 065
  2. RITONAVIR [Suspect]
     Indication: HIV INFECTION
     Route: 065
  3. BOCEPREVIR [Interacting]
     Indication: HEPATITIS C
     Route: 065
  4. PEGYLATED INTERFERON [Suspect]
     Indication: HEPATITIS C
     Dosage: HCV therapy
     Route: 065
  5. RIBAVIRIN [Suspect]
     Indication: HEPATITIS C
     Dosage: HCV therapy
     Route: 065

REACTIONS (2)
  - Hepatic cirrhosis [Unknown]
  - Drug interaction [Unknown]
